FAERS Safety Report 9120113 (Version 2)
Quarter: 2013Q4

REPORT INFORMATION
  Report Type: Report from Study
  Country: JP (occurrence: JP)
  Receive Date: 20130226
  Receipt Date: 20131227
  Transmission Date: 20140711
  Serious: Yes (Hospitalization)
  Sender: FDA-Public Use
  Company Number: JP-UCBSA-077886

PATIENT
  Age: 51 Year
  Sex: Female
  Weight: 60 kg

DRUGS (7)
  1. CERTOLIZUMAB PEGOL [Suspect]
     Indication: RHEUMATOID ARTHRITIS
     Route: 058
     Dates: start: 2012
  2. CERTOLIZUMAB PEGOL [Suspect]
     Indication: RHEUMATOID ARTHRITIS
     Dosage: LOADING DOSE: W0, W2, W4
     Route: 058
     Dates: start: 20120515, end: 2012
  3. METHOTREXATE [Concomitant]
     Indication: RHEUMATOID ARTHRITIS
     Route: 048
  4. CELECOXIB [Concomitant]
     Indication: RHEUMATOID ARTHRITIS
     Route: 048
  5. FOLIC ACID [Concomitant]
     Indication: PROPHYLAXIS
     Route: 048
  6. SULFAMETHOXAZOLE TRIMETHOPRIM [Concomitant]
     Indication: INFECTION PROPHYLAXIS
     Route: 048
  7. DRIED FERROUS SULPHATE [Concomitant]
     Indication: IRON DEFICIENCY ANAEMIA
     Route: 048

REACTIONS (1)
  - Large intestine polyp [Recovered/Resolved]
